FAERS Safety Report 15320581 (Version 1)
Quarter: 2018Q3

REPORT INFORMATION
  Report Type: Spontaneous
  Country: US (occurrence: US)
  Receive Date: 20180827
  Receipt Date: 20180827
  Transmission Date: 20181010
  Serious: Yes (Death, Hospitalization, Other)
  Sender: FDA-Public Use
  Company Number: US-AUROBINDO-AUR-APL-2018-042459

PATIENT
  Age: 48 Year
  Sex: Female

DRUGS (3)
  1. HEROIN [Suspect]
     Active Substance: DIAMORPHINE
     Indication: PRODUCT USED FOR UNKNOWN INDICATION
     Dosage: UNK
     Route: 048
  2. OXYCODONE [Suspect]
     Active Substance: OXYCODONE
     Indication: PRODUCT USED FOR UNKNOWN INDICATION
     Dosage: UNK
     Route: 048
  3. MORPHINE [Suspect]
     Active Substance: MORPHINE
     Indication: PRODUCT USED FOR UNKNOWN INDICATION
     Dosage: UNK
     Route: 048

REACTIONS (13)
  - Mental status changes [Fatal]
  - Abnormal behaviour [Fatal]
  - Toxic leukoencephalopathy [Fatal]
  - Selective mutism [Fatal]
  - Hyperreflexia [Fatal]
  - Depressed level of consciousness [Fatal]
  - Fall [Fatal]
  - Headache [Fatal]
  - Aphasia [Fatal]
  - Encephalopathy [Fatal]
  - Lethargy [Fatal]
  - Apraxia [Fatal]
  - Drug abuse [Unknown]
